FAERS Safety Report 9965490 (Version 1)
Quarter: 2014Q1

REPORT INFORMATION
  Report Type: Spontaneous
  Country: US (occurrence: US)
  Receive Date: 20140305
  Receipt Date: 20140305
  Transmission Date: 20141002
  Serious: Yes (Other)
  Sender: FDA-Public Use
  Company Number: US-ELI_LILLY_AND_COMPANY-US201403000895

PATIENT
  Sex: Female

DRUGS (2)
  1. FORTEO [Suspect]
     Indication: OSTEOPOROSIS
     Dosage: UNK, QD
     Route: 065
  2. LOTENSIN                           /00909102/ [Concomitant]
     Indication: HYPERTENSION
     Route: 065

REACTIONS (10)
  - Spinal fracture [Unknown]
  - Body height decreased [Unknown]
  - Hypertension [Unknown]
  - Oesophageal disorder [Unknown]
  - Gastrointestinal disorder [Unknown]
  - Abdomen crushing [Unknown]
  - Chest crushing [Unknown]
  - Tooth disorder [Unknown]
  - Tooth injury [Unknown]
  - Dental caries [Unknown]
